FAERS Safety Report 16713858 (Version 2)
Quarter: 2019Q4

REPORT INFORMATION
  Report Type: Spontaneous
  Country: US (occurrence: US)
  Receive Date: 20190819
  Receipt Date: 20191017
  Transmission Date: 20200122
  Serious: No
  Sender: FDA-Public Use
  Company Number: US-BIOGEN-2019BI00775233

PATIENT
  Sex: Female

DRUGS (1)
  1. AVONEX [Suspect]
     Active Substance: INTERFERON BETA-1A
     Indication: MULTIPLE SCLEROSIS
     Route: 065
     Dates: start: 19981101

REACTIONS (7)
  - Injection site haemorrhage [Unknown]
  - Respiratory tract infection [Unknown]
  - Nerve injury [Unknown]
  - Injection site erythema [Unknown]
  - Skin atrophy [Unknown]
  - Injection site induration [Unknown]
  - Platelet count decreased [Unknown]
